FAERS Safety Report 9066744 (Version 3)
Quarter: 2013Q1

REPORT INFORMATION
  Report Type: Spontaneous
  Country: US (occurrence: US)
  Receive Date: 20130214
  Receipt Date: 20130321
  Transmission Date: 20140127
  Serious: Yes (Other)
  Sender: FDA-Public Use
  Company Number: US-GLAXOSMITHKLINE-A1008220A

PATIENT
  Age: 66 Year
  Sex: Female

DRUGS (9)
  1. VENTOLIN [Suspect]
     Indication: COUGH
     Dosage: 2PUFF FOUR TIMES PER DAY
     Route: 055
     Dates: start: 201102
  2. FLONASE [Concomitant]
  3. SINGULAIR [Concomitant]
  4. CLARITIN [Concomitant]
  5. PAXIL CR [Concomitant]
  6. TRAZODONE [Concomitant]
  7. VESICARE [Concomitant]
  8. LEVOTHYROXINE [Concomitant]
  9. CHEMOTHERAPY [Concomitant]

REACTIONS (2)
  - Metastases to lymph nodes [Not Recovered/Not Resolved]
  - Cough [Recovering/Resolving]
